FAERS Safety Report 6344793-5 (Version None)
Quarter: 2009Q3

REPORT INFORMATION
  Report Type: 
  Country: None (occurrence: None)
  Receive Date: 20090904
  Receipt Date: 20090819
  Transmission Date: 20100115
  Serious: Yes (Other)
  Sender: FDA-Public Use
  Company Number: 2008S1010980

PATIENT
  Age: 68 Year
  Sex: Male

DRUGS (15)
  1. PHOSPHOSODA FLAVOR NOT SPECIFIED [Suspect]
     Indication: COLONOSCOPY
     Dosage: 45 ML; X1; PO
     Route: 048
     Dates: start: 20060912, end: 20060913
  2. CRESTOR [Concomitant]
  3. AVALIDE [Concomitant]
  4. SYNTHROID [Concomitant]
  5. GLYBURIDE [Concomitant]
  6. METFORMIN HCL [Concomitant]
  7. GLUCOSAMINE W/CHONDROITIN SULFATE [Concomitant]
  8. LYRICA [Concomitant]
  9. TAZTIA [Concomitant]
  10. METANX /01297301/ [Concomitant]
  11. TIMOPTIC [Concomitant]
  12. GAVISCON /00237601/ [Concomitant]
  13. ASPIRIN [Concomitant]
  14. ALEVE [Concomitant]
  15. XALATAN [Concomitant]

REACTIONS (4)
  - NEPHROPATHY TOXIC [None]
  - NEPHROSCLEROSIS [None]
  - RENAL FAILURE ACUTE [None]
  - RENAL FAILURE CHRONIC [None]
